FAERS Safety Report 15500748 (Version 1)
Quarter: 2018Q4

REPORT INFORMATION
  Report Type: Spontaneous
  Country: US (occurrence: US)
  Receive Date: 20181015
  Receipt Date: 20181015
  Transmission Date: 20190205
  Serious: Yes (Other)
  Sender: FDA-Public Use
  Company Number: US-NOVOPROD-625905

PATIENT
  Age: 41 Year
  Sex: Female

DRUGS (3)
  1. SAXENDA [Suspect]
     Active Substance: LIRAGLUTIDE
     Dosage: 2.4 MG, UNK
     Route: 058
     Dates: start: 20181001
  2. SAXENDA [Suspect]
     Active Substance: LIRAGLUTIDE
     Indication: WEIGHT DECREASED
     Dosage: UNK
     Route: 058
     Dates: start: 20180820, end: 2018
  3. SAXENDA [Suspect]
     Active Substance: LIRAGLUTIDE
     Dosage: 2.4 MG, UNK
     Route: 058
     Dates: start: 2018, end: 20180914

REACTIONS (11)
  - Urinary incontinence [Recovered/Resolved]
  - Diarrhoea [Unknown]
  - Dehydration [Recovering/Resolving]
  - Eructation [Not Recovered/Not Resolved]
  - Dizziness [Unknown]
  - Anal incontinence [Recovered/Resolved]
  - Gastrointestinal sounds abnormal [Not Recovered/Not Resolved]
  - Decreased appetite [Unknown]
  - Dry mouth [Unknown]
  - Food poisoning [Recovering/Resolving]
  - Drug dose titration not performed [Unknown]

NARRATIVE: CASE EVENT DATE: 20180913
